FAERS Safety Report 8174311-0 (Version None)
Quarter: 2012Q1

REPORT INFORMATION
  Report Type: 
  Country: None (occurrence: None)
  Receive Date: 20120229
  Receipt Date: 20120220
  Transmission Date: 20120608
  Serious: Yes (Hospitalization, Other)
  Sender: FDA-Public Use
  Company Number: JP-MERCK-1202USA01436

PATIENT
  Age: 66 Year
  Sex: Male

DRUGS (8)
  1. KINEDAK [Concomitant]
     Route: 065
     Dates: start: 20111001
  2. JANUVIA [Suspect]
     Indication: TYPE 2 DIABETES MELLITUS
     Route: 048
     Dates: start: 20111217, end: 20111226
  3. ALLOPURINOL [Concomitant]
     Route: 065
  4. NORVASC [Concomitant]
     Route: 065
  5. DIOVAN [Concomitant]
     Route: 065
  6. JANUVIA [Suspect]
     Route: 048
     Dates: start: 20111227, end: 20120101
  7. LANSOPRAZOLE [Concomitant]
     Route: 065
  8. AMARYL [Concomitant]
     Route: 065

REACTIONS (1)
  - ANGINA UNSTABLE [None]
